FAERS Safety Report 8086818 (Version 2)
Quarter: 2013Q2

REPORT INFORMATION
  Report Type: Report from Study
  Country: MX (occurrence: MX)
  Receive Date: 20110811
  Receipt Date: 20130612
  Transmission Date: 20140414
  Serious: Yes (Other)
  Sender: FDA-Public Use
  Company Number: PHHY2011MX71471

PATIENT
  Age: 64 Year
  Sex: Female

DRUGS (2)
  1. TEGRETOL 200 LC [Suspect]
     Indication: EPILEPSY
     Dosage: 2 TABLETS 200 MG PER DAY
     Route: 048
  2. RIVOTRIL [Concomitant]

REACTIONS (4)
  - Road traffic accident [Recovered/Resolved]
  - Pain [Unknown]
  - Inflammation [Unknown]
  - Headache [Recovered/Resolved]
